FAERS Safety Report 22924949 (Version 4)
Quarter: 2023Q4

REPORT INFORMATION
  Report Type: Spontaneous
  Country: DE (occurrence: DE)
  Receive Date: 20230908
  Receipt Date: 20231107
  Transmission Date: 20240110
  Serious: Yes (Life-Threatening, Hospitalization, Other)
  Sender: FDA-Public Use
  Company Number: DE-AMGEN-DEUSP2023153102

PATIENT
  Age: 6 Year
  Sex: Male

DRUGS (11)
  1. INOTUZUMAB OZOGAMICIN [Suspect]
     Active Substance: INOTUZUMAB OZOGAMICIN
     Indication: Acute lymphocytic leukaemia refractory
     Dosage: 0.4 MILLIGRAM
     Route: 042
     Dates: start: 20230503, end: 20230719
  2. METHOTREXATE SODIUM [Suspect]
     Active Substance: METHOTREXATE SODIUM
     Indication: Acute lymphocytic leukaemia refractory
     Dosage: 12 MILLIGRAM
     Route: 037
     Dates: start: 20230504, end: 20230727
  3. BLINATUMOMAB [Suspect]
     Active Substance: BLINATUMOMAB
     Indication: Acute lymphocytic leukaemia refractory
     Dosage: 25 MICROGRAM (25UG/48H) (PAUSED FOR 3 H)
     Dates: start: 20230814
  4. BLINATUMOMAB [Suspect]
     Active Substance: BLINATUMOMAB
     Dosage: 4.25 MICROGRAM, QD
     Dates: start: 20230815
  5. BLINATUMOMAB [Suspect]
     Active Substance: BLINATUMOMAB
     Dosage: UNK RESTARTED AT AROUND 16:00
     Dates: start: 20230815
  6. METHYLPREDNISOLONE [Suspect]
     Active Substance: METHYLPREDNISOLONE
     Indication: Acute lymphocytic leukaemia refractory
     Dosage: 20 MILLIGRAM
     Route: 042
     Dates: start: 20230503, end: 20230719
  7. CYTARABINE [Suspect]
     Active Substance: CYTARABINE
     Indication: Acute lymphocytic leukaemia refractory
     Dosage: 24 MILLIGRAM
     Route: 037
     Dates: start: 20230504, end: 20230727
  8. PREDNISOLONE [Suspect]
     Active Substance: PREDNISOLONE
     Indication: Acute lymphocytic leukaemia refractory
     Dosage: 12 MILLIGRAM
     Route: 037
     Dates: start: 20230504, end: 20230727
  9. VITAMIN D NOS [Concomitant]
     Active Substance: VITAMIN D NOS
     Indication: Vitamin supplementation
     Dosage: UNK
     Route: 048
  10. COTRIM [Concomitant]
     Active Substance: SULFAMETHOXAZOLE\TRIMETHOPRIM
     Indication: Antifungal prophylaxis
     Dosage: UNK
     Route: 048
  11. COTRIM [Concomitant]
     Active Substance: SULFAMETHOXAZOLE\TRIMETHOPRIM
     Dosage: UNK
     Route: 048

REACTIONS (6)
  - Immune effector cell-associated neurotoxicity syndrome [Recovered/Resolved]
  - Cytokine release syndrome [Recovered/Resolved]
  - Generalised tonic-clonic seizure [Recovered/Resolved]
  - Body temperature increased [Recovered/Resolved]
  - Chills [Recovered/Resolved]
  - Off label use [Unknown]

NARRATIVE: CASE EVENT DATE: 20230503
